FAERS Safety Report 4843499-9 (Version None)
Quarter: 2005Q4

REPORT INFORMATION
  Report Type: 
  Country: None (occurrence: None)
  Receive Date: 20051202
  Receipt Date: 20051121
  Transmission Date: 20060501
  Serious: Yes (Death)
  Sender: FDA-Public Use
  Company Number: PHBS2005JP17136

PATIENT
  Age: 69 Year
  Sex: Female

DRUGS (4)
  1. STEROIDS NOS [Concomitant]
     Route: 048
  2. PEGINTERFERON ALFA-2A [Concomitant]
     Route: 058
  3. RIBAVIRIN [Concomitant]
     Route: 048
  4. NEORAL [Suspect]
     Indication: LIVER TRANSPLANT
     Route: 048
     Dates: start: 20050216, end: 20050914

REACTIONS (2)
  - HEPATIC CIRRHOSIS [None]
  - HEPATITIS C [None]
